FAERS Safety Report 4778493-X (Version None)
Quarter: 2005Q3

REPORT INFORMATION
  Report Type: 
  Country: None (occurrence: None)
  Receive Date: 20050922
  Receipt Date: 20050913
  Transmission Date: 20060218
  Serious: Yes (Hospitalization, Other)
  Sender: FDA-Public Use
  Company Number: 2005096086

PATIENT
  Age: 70 Year
  Sex: Female
  Weight: 60.782 kg

DRUGS (4)
  1. DETROL LA [Suspect]
     Indication: HYPERTONIC BLADDER
     Dosage: 4 MG (4 MG, 1 IN 1 D) ORAL
     Route: 048
     Dates: start: 20050601
  2. METHOTREXATE [Concomitant]
  3. ACTONEL [Concomitant]
  4. LORTAB [Concomitant]

REACTIONS (5)
  - BLOOD CHOLESTEROL INCREASED [None]
  - DRUG INEFFECTIVE [None]
  - EMPHYSEMA [None]
  - HYPERTENSION [None]
  - MYOCARDIAL INFARCTION [None]
